FAERS Safety Report 6427900-5 (Version None)
Quarter: 2009Q4

REPORT INFORMATION
  Report Type: 
  Country: None (occurrence: None)
  Receive Date: 20091105
  Receipt Date: 20091029
  Transmission Date: 20100525
  Serious: Yes (Other)
  Sender: FDA-Public Use
  Company Number: US-BAYER-200937946NA

PATIENT
  Age: 30 Year
  Sex: Female

DRUGS (2)
  1. YAZ [Suspect]
     Indication: OVARIAN CYST
  2. LORTAB [Concomitant]

REACTIONS (2)
  - GALLBLADDER OPERATION [None]
  - PULMONARY EMBOLISM [None]
